FAERS Safety Report 16283074 (Version 2)
Quarter: 2019Q4

REPORT INFORMATION
  Report Type: Spontaneous
  Country: US (occurrence: US)
  Receive Date: 20190507
  Receipt Date: 20191107
  Transmission Date: 20200122
  Serious: Yes (Other)
  Sender: FDA-Public Use
  Company Number: US-SA-2019SA119946

PATIENT

DRUGS (3)
  1. METFORMIN HYDROCHLORIDE. [Suspect]
     Active Substance: METFORMIN HYDROCHLORIDE
     Route: 065
  2. VICTOZA [Suspect]
     Active Substance: LIRAGLUTIDE
     Route: 065
  3. APIDRA [Suspect]
     Active Substance: INSULIN GLULISINE
     Route: 065

REACTIONS (8)
  - Stress [Unknown]
  - Sciatica [Unknown]
  - Blood glucose increased [Unknown]
  - Overdose [Unknown]
  - Weight decreased [Unknown]
  - Pain [Unknown]
  - Compression fracture [Unknown]
  - Diabetic nephropathy [Unknown]
